FAERS Safety Report 8833662 (Version 1)
Quarter: 2012Q4

REPORT INFORMATION
  Report Type: 
  Country: US (occurrence: US)
  Receive Date: 20121010
  Receipt Date: 20121010
  Transmission Date: 20130627
  Serious: No
  Sender: FDA-Public Use
  Company Number: US-B.I. PHARMACEUTICALS,INC./RIDGEFIELD-2012-BP-23623BP

PATIENT
  Age: 56 Year
  Sex: Female
  Weight: 52 kg

DRUGS (14)
  1. SPIRIVA [Suspect]
     Indication: CHRONIC OBSTRUCTIVE PULMONARY DISEASE
     Dosage: 18 mcg
     Route: 055
  2. SPIRIVA [Suspect]
     Route: 048
     Dates: start: 20120927, end: 20120927
  3. ALLEGRA [Concomitant]
     Indication: SEASONAL ALLERGY
     Route: 048
  4. LUBRIFRESH PM [Concomitant]
  5. CELEBREX [Concomitant]
     Dosage: 400 mg
     Route: 048
  6. EVOXAC [Concomitant]
     Indication: RHEUMATOID ARTHRITIS
     Dosage: 90 mg
     Route: 048
  7. BONIVA [Concomitant]
     Route: 048
  8. LIPITOR [Concomitant]
     Indication: BLOOD CHOLESTEROL INCREASED
     Dosage: 20 mg
     Route: 048
  9. ZOLPIDEM [Concomitant]
  10. RESTASIS [Concomitant]
     Indication: DRY EYE
  11. MAGNESIUM [Concomitant]
     Dosage: 400 mg
     Route: 048
  12. OSCAL [Concomitant]
     Dosage: 300 mg
     Route: 048
  13. TRAMADOL [Concomitant]
     Dosage: 150 mg
     Route: 048
  14. REFRESH TEARS [Concomitant]

REACTIONS (1)
  - Incorrect route of drug administration [Recovered/Resolved]
